FAERS Safety Report 8520401-X (Version None)
Quarter: 2012Q3

REPORT INFORMATION
  Report Type: 
  Country: None (occurrence: None)
  Receive Date: 20120719
  Receipt Date: 20120711
  Transmission Date: 20120928
  Serious: Yes (Hospitalization, Other)
  Sender: FDA-Public Use
  Company Number: US-ASTELLAS-2012US006134

PATIENT
  Sex: Male
  Weight: 74 kg

DRUGS (6)
  1. PROGRAF [Suspect]
     Indication: LIVER TRANSPLANT
     Dosage: UNK
     Route: 065
  2. AMLODIPINE [Concomitant]
     Indication: BLOOD PRESSURE ABNORMAL
     Dosage: 10 MG, UID/QD
     Route: 065
  3. RAPAMUNE [Suspect]
     Indication: LIVER TRANSPLANT
     Dosage: 4 MG, UID/QD
     Route: 065
  4. CELLCEPT [Suspect]
     Indication: LIVER TRANSPLANT
     Dosage: UNK
     Route: 065
  5. UNSPECIFIED MEDICATION [Suspect]
     Indication: LIVER TRANSPLANT
     Dosage: UNK
     Route: 065
  6. LASIX [Concomitant]
     Indication: PRODUCT USED FOR UNKNOWN INDICATION
     Dosage: 20 MG, UID/QD
     Route: 065

REACTIONS (5)
  - DRUG INEFFECTIVE [None]
  - LUNG INFILTRATION [None]
  - PNEUMONIA [None]
  - SURGERY [None]
  - COUGH [None]
